FAERS Safety Report 15417117 (Version 2)
Quarter: 2018Q4

REPORT INFORMATION
  Report Type: Spontaneous
  Country: US (occurrence: US)
  Receive Date: 20180924
  Receipt Date: 20181005
  Transmission Date: 20190204
  Serious: No
  Sender: FDA-Public Use
  Company Number: US-JNJFOC-20180908893

PATIENT
  Age: 57 Year
  Sex: Male
  Weight: 108.41 kg

DRUGS (1)
  1. STELARA [Suspect]
     Active Substance: USTEKINUMAB
     Indication: PSORIASIS
     Route: 058
     Dates: start: 201611, end: 20180625

REACTIONS (1)
  - Exposure to communicable disease [Unknown]

NARRATIVE: CASE EVENT DATE: 201808
